FAERS Safety Report 10143049 (Version 1)
Quarter: 2014Q2

REPORT INFORMATION
  Report Type: Spontaneous
  Country: JP (occurrence: JP)
  Receive Date: 20140430
  Receipt Date: 20140430
  Transmission Date: 20141212
  Serious: Yes (Hospitalization)
  Sender: FDA-Public Use
  Company Number: JP-ROCHE-1393070

PATIENT
  Age: 61 Year
  Sex: Male

DRUGS (2)
  1. RITUXIMAB [Suspect]
     Indication: RENAL TRANSPLANT
     Route: 042
     Dates: start: 20140411, end: 20140412
  2. RITUXIMAB [Suspect]
     Indication: RENAL FAILURE CHRONIC

REACTIONS (2)
  - Shock [Recovering/Resolving]
  - Blood pressure decreased [Recovering/Resolving]
